FAERS Safety Report 22338815 (Version 1)
Quarter: 2023Q2

REPORT INFORMATION
  Report Type: Spontaneous
  Country: IT (occurrence: IT)
  Receive Date: 20230518
  Receipt Date: 20230518
  Transmission Date: 20230722
  Serious: Yes (Hospitalization, Other)
  Sender: FDA-Public Use
  Company Number: IT-SUN PHARMACEUTICAL INDUSTRIES LTD-2023R1-388782

PATIENT
  Age: 83 Year
  Sex: Male

DRUGS (3)
  1. HALOPERIDOL [Suspect]
     Active Substance: HALOPERIDOL
     Indication: Vascular dementia
     Dosage: 1 MILLIGRAM, TID
     Route: 065
  2. MEMANTINE [Suspect]
     Active Substance: MEMANTINE
     Indication: Vascular dementia
     Dosage: 10 MILLIGRAM, DAILY
     Route: 065
  3. QUETIAPINE [Suspect]
     Active Substance: QUETIAPINE
     Indication: Vascular dementia
     Dosage: 75 MILLIGRAM, DAILY
     Route: 065

REACTIONS (2)
  - Respiratory failure [Unknown]
  - Therapeutic response decreased [Unknown]
